FAERS Safety Report 9507542 (Version 1)
Quarter: 2013Q3

REPORT INFORMATION
  Report Type: Spontaneous
  Country: US (occurrence: None)
  Receive Date: 20130906
  Receipt Date: 20130906
  Transmission Date: 20140515
  Serious: Yes (Other)
  Sender: FDA-Public Use
  Company Number: None

PATIENT
  Age: 51 Year
  Sex: Female
  Weight: 58.06 kg

DRUGS (2)
  1. LEVOFLOXACIN 750MG CVS. MFR: DR. REDDY^S LAB [Suspect]
     Indication: NASOPHARYNGITIS
     Dosage: 1   ONCE DAILY  TAKEN BY MOUTH
     Route: 048
     Dates: start: 20130402, end: 20130404
  2. LEVOFLOXACIN 750MG CVS. MFR: DR. REDDY^S LAB [Suspect]
     Indication: COUGH
     Dosage: 1   ONCE DAILY  TAKEN BY MOUTH
     Route: 048
     Dates: start: 20130402, end: 20130404

REACTIONS (4)
  - Local swelling [None]
  - Hypoaesthesia [None]
  - Arthralgia [None]
  - Impaired work ability [None]
